FAERS Safety Report 10092598 (Version 1)
Quarter: 2014Q2

REPORT INFORMATION
  Report Type: Spontaneous
  Country: US (occurrence: US)
  Receive Date: 20140421
  Receipt Date: 20140421
  Transmission Date: 20141212
  Serious: No
  Sender: FDA-Public Use
  Company Number: US-SANOFI-AVENTIS-2013SA051657

PATIENT
  Age: 51 Year
  Sex: Female
  Weight: 57 kg

DRUGS (3)
  1. ALLEGRA [Suspect]
     Indication: HYPERSENSITIVITY
     Route: 048
     Dates: start: 20130517, end: 20130519
  2. AZELASTINE HYDROCHLORIDE [Concomitant]
  3. PEPCID AC [Concomitant]

REACTIONS (3)
  - Cough [Recovered/Resolved]
  - Thirst [Recovered/Resolved]
  - Dry throat [Recovered/Resolved]
